FAERS Safety Report 8759380 (Version 6)
Quarter: 2015Q2

REPORT INFORMATION
  Report Type: Spontaneous
  Country: US (occurrence: US)
  Receive Date: 20120829
  Receipt Date: 20150528
  Transmission Date: 20150821
  Serious: Yes (Hospitalization, Disabling, Other)
  Sender: FDA-Public Use
  Company Number: US-009507513-1208USA009893

PATIENT
  Sex: Female
  Weight: 59.86 kg

DRUGS (3)
  1. FOSAMAX [Suspect]
     Active Substance: ALENDRONATE SODIUM
     Indication: OSTEOPOROSIS
     Dosage: 70 MG, QW
     Route: 048
     Dates: start: 1998
  2. ALENDRONATE SODIUM. [Suspect]
     Active Substance: ALENDRONATE SODIUM
     Indication: OSTEOPOROSIS
     Dosage: 70 MG, QW
  3. ALENDRONATE SODIUM. [Suspect]
     Active Substance: ALENDRONATE SODIUM
     Indication: OSTEOPOROSIS
     Route: 048

REACTIONS (54)
  - Osteopenia [Unknown]
  - Ischaemia [Unknown]
  - Cardiac failure congestive [Unknown]
  - Muscle rupture [Unknown]
  - Pneumonia [Unknown]
  - Blood potassium decreased [Unknown]
  - Gastrooesophageal reflux disease [Unknown]
  - Oedema peripheral [Unknown]
  - Cardiac failure congestive [Unknown]
  - Pulmonary oedema [Unknown]
  - Tachyarrhythmia [Unknown]
  - Chronic obstructive pulmonary disease [Not Recovered/Not Resolved]
  - Delirium [Unknown]
  - Back disorder [Unknown]
  - Hypertension [Unknown]
  - Emphysema [Unknown]
  - Dry mouth [Unknown]
  - Paraesthesia [Unknown]
  - Low turnover osteopathy [Unknown]
  - Infection [Unknown]
  - Intervertebral disc degeneration [Unknown]
  - Urinary tract infection [Unknown]
  - Hypercholesterolaemia [Unknown]
  - Osteoarthritis [Unknown]
  - Electrocardiogram ST segment depression [Unknown]
  - Aortic arteriosclerosis [Unknown]
  - Iron deficiency [Unknown]
  - Constipation [Unknown]
  - Rib fracture [Unknown]
  - Sternal fracture [Unknown]
  - Pneumothorax [Unknown]
  - Traumatic lung injury [Unknown]
  - Vertigo [Unknown]
  - Coronary artery disease [Unknown]
  - Rales [Unknown]
  - Angina unstable [Unknown]
  - Femur fracture [Unknown]
  - Anxiety [Unknown]
  - Joint effusion [Unknown]
  - Insomnia [Not Recovered/Not Resolved]
  - Asthenia [Unknown]
  - Cardiomegaly [Unknown]
  - Bursitis [Unknown]
  - Hypokalaemia [Unknown]
  - Depression [Unknown]
  - Femur fracture [Unknown]
  - Depression [Unknown]
  - Atelectasis [Unknown]
  - Arthropathy [Unknown]
  - Left ventricular hypertrophy [Unknown]
  - Performance status decreased [Unknown]
  - Sjogren^s syndrome [Unknown]
  - Pneumothorax [Unknown]
  - Drug ineffective [Unknown]

NARRATIVE: CASE EVENT DATE: 2005
